FAERS Safety Report 17445913 (Version 2)
Quarter: 2020Q1

REPORT INFORMATION
  Report Type: Report from Study
  Country: GB (occurrence: GB)
  Receive Date: 20200221
  Receipt Date: 20200225
  Transmission Date: 20200409
  Serious: Yes (Hospitalization)
  Sender: FDA-Public Use
  Company Number: GB-CELGENEUS-GBR-20200204247

PATIENT
  Age: 69 Year
  Sex: Male
  Weight: 75 kg

DRUGS (12)
  1. ATROVASTATIN [Concomitant]
     Active Substance: ATORVASTATIN CALCIUM
     Indication: HYPERLIPIDAEMIA
     Dosage: 40 MG X 1 X 1 DAYS
     Route: 048
     Dates: start: 201303, end: 20200114
  2. MAGNESIUM SULFATE. [Concomitant]
     Active Substance: MAGNESIUM SULFATE
     Indication: HYPOMAGNESAEMIA
     Dosage: 20 MMOL MMOL X ONCE
     Route: 042
     Dates: start: 20200114, end: 20200114
  3. PARACETAMOL [Concomitant]
     Active Substance: ACETAMINOPHEN
     Indication: ANALGESIC THERAPY
     Dosage: 500 MG X PRN
     Route: 048
  4. RANITIDINE. [Concomitant]
     Active Substance: RANITIDINE
     Dosage: 150 MG X 1 X 1 DAYS
     Route: 048
     Dates: start: 20200120
  5. RAMIPRIL. [Concomitant]
     Active Substance: RAMIPRIL
     Indication: HYPERTENSION
     Dosage: 5 MG X 1 X 1 DAYS
     Route: 048
     Dates: start: 200807
  6. PREDNISOLONE. [Concomitant]
     Active Substance: PREDNISOLONE
     Dosage: 2 MG X 1 X 1 DAYS
     Route: 048
     Dates: start: 20191231, end: 20200114
  7. FEDRATINIB [Suspect]
     Active Substance: FEDRATINIB
     Indication: PRIMARY MYELOFIBROSIS
     Dosage: 400 MG X 1 X 1 DAYS
     Route: 048
     Dates: start: 20191219
  8. RANITIDINE. [Concomitant]
     Active Substance: RANITIDINE
     Indication: HIATUS HERNIA
     Dosage: 300 MG X 1 X 1 DAYS
     Route: 048
     Dates: start: 2015, end: 20200114
  9. ALLOPURINOL. [Concomitant]
     Active Substance: ALLOPURINOL
     Dosage: 300 MG X 1 X 1 DAYS
     Route: 048
     Dates: start: 20200120
  10. FEXOFENADINE [Concomitant]
     Active Substance: FEXOFENADINE HYDROCHLORIDE
     Indication: PRURITUS
     Dosage: 180 MG X 1 X 1 DAYS
     Route: 048
     Dates: start: 201911, end: 20191222
  11. ALLOPURINOL. [Concomitant]
     Active Substance: ALLOPURINOL
     Indication: GOUT
     Dosage: 400 MG X 1 X 1 DAYS
     Route: 048
     Dates: start: 201709, end: 20200120
  12. PREDNISOLONE. [Concomitant]
     Active Substance: PREDNISOLONE
     Indication: MYELOFIBROSIS
     Dosage: 3 MG X 1 X 1 DAYS
     Route: 048
     Dates: start: 20191219, end: 20191230

REACTIONS (1)
  - Hyperkalaemia [Recovered/Resolved]

NARRATIVE: CASE EVENT DATE: 20200114
